FAERS Safety Report 5726640-5 (Version None)
Quarter: 2008Q2

REPORT INFORMATION
  Report Type: 
  Country: None (occurrence: None)
  Receive Date: 20080502
  Receipt Date: 20080423
  Transmission Date: 20081010
  Serious: Yes (Hospitalization)
  Sender: FDA-Public Use
  Company Number: US-ABBOTT-08P-163-0448843-00

PATIENT
  Age: 26 Year
  Sex: Male

DRUGS (8)
  1. CYCLOSPORINE [Suspect]
     Indication: IMMUNOSUPPRESSION
  2. CYCLOSPORINE [Suspect]
     Dosage: NOT REPORTED
  3. CYCLOSPORINE [Suspect]
  4. TACROLIMUS [Suspect]
     Indication: IMMUNOSUPPRESSION
     Dosage: NOT REPORTED
  5. SIROLIMUS [Suspect]
     Indication: IMMUNOSUPPRESSION
  6. PREDNISONE [Concomitant]
     Indication: IMMUNOSUPPRESSION
  7. MYCOPHENOLATE MOFETIL [Concomitant]
     Indication: IMMUNOSUPPRESSION
  8. MYCOPHENOLATE MOFETIL [Concomitant]

REACTIONS (1)
  - THROMBOTIC MICROANGIOPATHY [None]
